FAERS Safety Report 5922754-5 (Version None)
Quarter: 2008Q4

REPORT INFORMATION
  Report Type: 
  Country: None (occurrence: None)
  Receive Date: 20081017
  Receipt Date: 20081009
  Transmission Date: 20090506
  Serious: Yes (Hospitalization, Other)
  Sender: FDA-Public Use
  Company Number: GR-ABBOTT-08P-066-0479635-00

PATIENT
  Age: 65 Year
  Sex: Female

DRUGS (4)
  1. HUMIRA [Suspect]
     Indication: PSORIASIS
     Route: 058
     Dates: start: 20080423, end: 20080611
  2. DIANICOTYL [Suspect]
     Indication: ANTIBIOTIC PROPHYLAXIS
     Route: 048
     Dates: start: 20080401, end: 20080601
  3. DIANICOTYL [Suspect]
     Dosage: 300 MG DAILY
  4. DIANICOTYL [Suspect]
     Dosage: 300 MG DAILY
     Route: 048
     Dates: start: 20080401, end: 20080601

REACTIONS (4)
  - HEPATITIS ACUTE [None]
  - HYPOKINESIA [None]
  - RESPIRATORY FAILURE [None]
  - RESTRICTIVE PULMONARY DISEASE [None]
